FAERS Safety Report 5837867-6 (Version None)
Quarter: 2008Q3

REPORT INFORMATION
  Report Type: 
  Country: None (occurrence: None)
  Receive Date: 20080808
  Receipt Date: 20080321
  Transmission Date: 20090109
  Serious: No
  Sender: FDA-Public Use
  Company Number: A0716807A

PATIENT
  Sex: Female

DRUGS (2)
  1. PAXIL CR [Suspect]
     Indication: DEPRESSION
     Dosage: 12.5MG PER DAY
     Dates: start: 20030501, end: 20040401
  2. FLINTSTONE VITAMINS [Concomitant]

REACTIONS (5)
  - ADVERSE EVENT [None]
  - DRUG EXPOSURE DURING PREGNANCY [None]
  - ILL-DEFINED DISORDER [None]
  - MALAISE [None]
  - SNORING [None]
